FAERS Safety Report 7424923-4 (Version None)
Quarter: 2011Q2

REPORT INFORMATION
  Report Type: 
  Country: None (occurrence: None)
  Receive Date: 20110419
  Receipt Date: 20110411
  Transmission Date: 20111010
  Serious: Yes (Other)
  Sender: FDA-Public Use
  Company Number: US-AMGEN-USASP2010003499

PATIENT
  Age: 48 Year
  Sex: Female

DRUGS (2)
  1. ENBREL [Suspect]
     Indication: RHEUMATOID ARTHRITIS
     Dates: start: 20031001, end: 20100401
  2. ENBREL [Suspect]
     Dates: start: 20031013, end: 20100101

REACTIONS (6)
  - HYPOAESTHESIA [None]
  - PAIN IN EXTREMITY [None]
  - SCIATIC NERVE NEUROPATHY [None]
  - RHEUMATOID ARTHRITIS [None]
  - SKIN HYPERTROPHY [None]
  - THERAPEUTIC RESPONSE DECREASED [None]
